FAERS Safety Report 12183234 (Version 1)
Quarter: 2016Q1

REPORT INFORMATION
  Report Type: Spontaneous
  Country: US (occurrence: None)
  Receive Date: 20160315
  Receipt Date: 20160315
  Transmission Date: 20160526
  Serious: Yes (Other)
  Sender: FDA-Public Use
  Company Number: None

PATIENT
  Age: 60 Year
  Sex: Male

DRUGS (1)
  1. XELODA [Suspect]
     Active Substance: CAPECITABINE
     Indication: PANCREATIC CARCINOMA
     Route: 048
     Dates: start: 2016

REACTIONS (5)
  - Fatigue [None]
  - Disorientation [None]
  - Confusional state [None]
  - Hypoaesthesia [None]
  - Incorrect dose administered [None]

NARRATIVE: CASE EVENT DATE: 20151201
